FAERS Safety Report 9150938 (Version 1)
Quarter: 2013Q1

REPORT INFORMATION
  Report Type: Spontaneous
  Country: GB (occurrence: GB)
  Receive Date: 20130308
  Receipt Date: 20130308
  Transmission Date: 20140127
  Serious: Yes (Hospitalization)
  Sender: FDA-Public Use
  Company Number: GB-B.I. PHARMACEUTICALS,INC./RIDGEFIELD-2013-UK-00116UK

PATIENT
  Age: 77 Year
  Sex: Male
  Weight: 61.23 kg

DRUGS (17)
  1. PRADAXA [Suspect]
     Indication: CEREBROVASCULAR ACCIDENT PROPHYLAXIS
     Dosage: 300 MG
     Route: 048
     Dates: start: 20130121, end: 20130212
  2. PRADAXA [Suspect]
     Indication: ATRIAL FIBRILLATION
  3. RANITIDINE [Concomitant]
     Indication: GASTROOESOPHAGEAL REFLUX DISEASE
     Dosage: 300 MG
     Route: 048
     Dates: start: 2001, end: 20130212
  4. PEPTAC [Concomitant]
     Indication: GASTROOESOPHAGEAL REFLUX DISEASE
     Route: 048
     Dates: start: 2008
  5. ALLOPURINOL [Concomitant]
     Indication: GOUT
     Dosage: 300 MG
     Route: 048
     Dates: start: 1983
  6. BISOPROLOL [Concomitant]
     Indication: CARDIAC DISORDER
     Dosage: 5 MG
     Route: 048
     Dates: start: 2011
  7. FUROSEMIDE [Concomitant]
     Indication: CARDIAC DISORDER
     Dosage: 120 MG
     Route: 048
     Dates: start: 1993
  8. IRBERSARTAN [Concomitant]
     Indication: BLOOD PRESSURE
     Dosage: 300 MG
     Route: 048
     Dates: start: 2008
  9. METFORMIN [Concomitant]
     Indication: TYPE 2 DIABETES MELLITUS
     Dosage: 1 G
     Route: 048
     Dates: start: 2011
  10. OMACOR [Concomitant]
     Indication: CARDIOVASCULAR EVENT PROPHYLAXIS
     Route: 048
     Dates: start: 2011
  11. PARACETAMOL [Concomitant]
     Indication: ARTHRITIS
     Dosage: 2 G
     Route: 048
     Dates: start: 2008
  12. TRAMADOL [Concomitant]
     Indication: ARTHRITIS
     Route: 048
     Dates: start: 2011
  13. ROPINIROLE [Concomitant]
     Dosage: 1 MG
     Route: 048
  14. ROSUVASTATIN [Concomitant]
     Dosage: 20 MG
     Route: 048
  15. SENNA [Concomitant]
     Dosage: 15 MG
     Route: 048
  16. TEMAZEPAM [Concomitant]
     Dosage: 10 MG
     Route: 048
  17. ASPIRIN [Concomitant]
     Indication: ANTICOAGULANT THERAPY
     Dosage: 75 MG
     Route: 048
     Dates: start: 1989

REACTIONS (4)
  - Dysphagia [Not Recovered/Not Resolved]
  - Gastrooesophageal reflux disease [Not Recovered/Not Resolved]
  - Dyspepsia [Not Recovered/Not Resolved]
  - Haematochezia [Not Recovered/Not Resolved]
